FAERS Safety Report 13362869 (Version 1)
Quarter: 2017Q1

REPORT INFORMATION
  Report Type: Spontaneous
  Country: US (occurrence: US)
  Receive Date: 20170322
  Receipt Date: 20170322
  Transmission Date: 20170429
  Serious: Yes (Life-Threatening)
  Sender: FDA-Public Use
  Company Number: None

PATIENT
  Age: 42 Year
  Sex: Female
  Weight: 49.5 kg

DRUGS (4)
  1. VIBERZI [Suspect]
     Active Substance: ELUXADOLINE
     Indication: DIARRHOEA
     Dosage: ?          QUANTITY:1 TABLET(S);?
     Route: 048
     Dates: start: 20170217, end: 20170217
  2. AMBIEN [Concomitant]
     Active Substance: ZOLPIDEM TARTRATE
  3. VSL #3 [Concomitant]
  4. COLESTIPOL [Concomitant]
     Active Substance: COLESTIPOL

REACTIONS (6)
  - Diarrhoea [None]
  - Abdominal pain [None]
  - Hyperhidrosis [None]
  - Musculoskeletal chest pain [None]
  - Screaming [None]
  - Procedural pain [None]

NARRATIVE: CASE EVENT DATE: 20170217
